FAERS Safety Report 17458791 (Version 1)
Quarter: 2020Q1

REPORT INFORMATION
  Report Type: Spontaneous
  Country: US (occurrence: US)
  Receive Date: 20200211
  Receipt Date: 20200211
  Transmission Date: 20200409
  Serious: No
  Sender: FDA-Public Use
  Company Number: None

PATIENT
  Sex: Male
  Weight: 122.4 kg

DRUGS (11)
  1. NAPROXEN SODIUM. [Concomitant]
     Active Substance: NAPROXEN SODIUM
  2. ATORVASTATIN [Concomitant]
     Active Substance: ATORVASTATIN
  3. TRAMADOL. [Concomitant]
     Active Substance: TRAMADOL
  4. ACETAMINOPHEN. [Concomitant]
     Active Substance: ACETAMINOPHEN
  5. JANUMET [Concomitant]
     Active Substance: METFORMIN HYDROCHLORIDE\SITAGLIPTIN PHOSPHATE
  6. LUPRON [Concomitant]
     Active Substance: LEUPROLIDE ACETATE
  7. HYDROCODONE-ACETAMINOPHEN [Concomitant]
     Active Substance: ACETAMINOPHEN\HYDROCODONE
  8. ABIRATERONE. [Suspect]
     Active Substance: ABIRATERONE ACETATE
     Dates: end: 20200123
  9. CABAZITAXEL [Suspect]
     Active Substance: CABAZITAXEL
     Dates: end: 20200123
  10. DEXAETHASONE [Concomitant]
  11. PREDNISONE. [Suspect]
     Active Substance: PREDNISONE
     Dates: end: 20200123

REACTIONS (1)
  - Body temperature increased [None]
